FAERS Safety Report 5309749-X (Version None)
Quarter: 2007Q2

REPORT INFORMATION
  Report Type: 
  Country: None (occurrence: None)
  Receive Date: 20070427
  Receipt Date: 20060908
  Transmission Date: 20071010
  Serious: No
  Sender: FDA-Public Use
  Company Number: US-GLAXOSMITHKLINE-A0616373A

PATIENT
  Age: 65 Year
  Sex: Female
  Weight: 68.6 kg

DRUGS (2)
  1. ZOFRAN [Suspect]
     Indication: NAUSEA
     Route: 048
  2. RADIATION [Concomitant]

REACTIONS (1)
  - DRUG EFFECT DECREASED [None]
